FAERS Safety Report 9256686 (Version 1)
Quarter: 2013Q2

REPORT INFORMATION
  Report Type: Spontaneous
  Country: US (occurrence: US)
  Receive Date: 20130426
  Receipt Date: 20130426
  Transmission Date: 20140414
  Serious: No
  Sender: FDA-Public Use
  Company Number: US-BIOGENIDEC-2013BI035726

PATIENT
  Age: 70 Year
  Sex: Female

DRUGS (6)
  1. AVONEX [Suspect]
     Indication: MULTIPLE SCLEROSIS
     Route: 030
     Dates: start: 20121022, end: 20121112
  2. AVONEX [Suspect]
     Indication: MULTIPLE SCLEROSIS
     Route: 030
     Dates: start: 20121119
  3. NORVASC [Concomitant]
     Indication: HYPERTENSION
  4. HYDROCHLOROTHIAZIDE [Concomitant]
     Indication: HYPERTENSION
     Dates: start: 2013, end: 2013
  5. LOSARTAN [Concomitant]
     Indication: HYPERTENSION
     Dates: start: 2013
  6. BUSPAR [Concomitant]
     Indication: ANXIETY

REACTIONS (6)
  - Joint swelling [Recovered/Resolved]
  - Poor quality sleep [Recovered/Resolved]
  - Bruxism [Unknown]
  - Dehydration [Recovered/Resolved]
  - Headache [Not Recovered/Not Resolved]
  - Confusional state [Not Recovered/Not Resolved]
